FAERS Safety Report 20380602 (Version 1)
Quarter: 2022Q1

REPORT INFORMATION
  Report Type: Report from Study
  Country: RU (occurrence: RU)
  Receive Date: 20220127
  Receipt Date: 20220127
  Transmission Date: 20220424
  Serious: Yes (Other)
  Sender: FDA-Public Use
  Company Number: RU-SUN PHARMACEUTICAL INDUSTRIES LTD-2022R1-323948

PATIENT
  Age: 1 Year

DRUGS (1)
  1. OCTREOTIDE [Suspect]
     Active Substance: OCTREOTIDE
     Indication: Hyperinsulinism
     Dosage: 6 MICROGRAM/KILOGRAM, DAILY
     Route: 058

REACTIONS (1)
  - Therapy partial responder [Unknown]
